FAERS Safety Report 16413881 (Version 1)
Quarter: 2019Q2

REPORT INFORMATION
  Report Type: Spontaneous
  Country: FI (occurrence: FI)
  Receive Date: 20190611
  Receipt Date: 20190611
  Transmission Date: 20190711
  Serious: Yes (Hospitalization, Other)
  Sender: FDA-Public Use
  Company Number: FI-ACCORD-025863

PATIENT
  Age: 63 Year
  Sex: Male

DRUGS (13)
  1. SACCHARATED IRON OXIDE [Interacting]
     Active Substance: IRON SUCROSE
     Indication: ANAEMIA
     Route: 040
  2. ESOMEPRAZOLE. [Concomitant]
     Active Substance: ESOMEPRAZOLE MAGNESIUM
  3. CLARITHROMYCIN/CLARITHROMYCIN LACTOBIONATE [Interacting]
     Active Substance: CLARITHROMYCIN LACTOBIONATE
     Indication: HELICOBACTER INFECTION
  4. FERRIC HYDROXIDE POLYMALTOSE C [Interacting]
     Active Substance: IRON POLYMALTOSE
     Indication: ANAEMIA
     Route: 048
  5. FERINJECT [Interacting]
     Active Substance: FERRIC CARBOXYMALTOSE
     Indication: ANAEMIA
     Route: 040
  6. TELMISARTAN. [Concomitant]
     Active Substance: TELMISARTAN
  7. METFORMIN [Concomitant]
     Active Substance: METFORMIN HYDROCHLORIDE
     Indication: TYPE 2 DIABETES MELLITUS
  8. METOPROLOL. [Concomitant]
     Active Substance: METOPROLOL
  9. SIMVASTATIN. [Suspect]
     Active Substance: SIMVASTATIN
     Indication: PRODUCT USED FOR UNKNOWN INDICATION
  10. HYDROCHLOROTHIAZIDE. [Concomitant]
     Active Substance: HYDROCHLOROTHIAZIDE
  11. LANSOPRAZOLE. [Interacting]
     Active Substance: LANSOPRAZOLE
     Indication: HELICOBACTER INFECTION
  12. INSULIN [Concomitant]
     Active Substance: INSULIN NOS
     Indication: TYPE 2 DIABETES MELLITUS
  13. AMOXICILLIN. [Concomitant]
     Active Substance: AMOXICILLIN
     Indication: HELICOBACTER INFECTION

REACTIONS (6)
  - Nausea [Unknown]
  - Drug interaction [Unknown]
  - Rhabdomyolysis [Unknown]
  - Vomiting [Unknown]
  - Contraindicated product administered [Unknown]
  - Acute kidney injury [Recovered/Resolved]
